FAERS Safety Report 7729074-7 (Version None)
Quarter: 2011Q3

REPORT INFORMATION
  Report Type: 
  Country: None (occurrence: None)
  Receive Date: 20110906
  Receipt Date: 20110828
  Transmission Date: 20111222
  Serious: No
  Sender: FDA-Public Use
  Company Number: US-B.I. PHARMACEUTICALS,INC./RIDGEFIELD-2011-BP-07449BP

PATIENT
  Age: 61 Year
  Sex: Male

DRUGS (2)
  1. TWYNSTA [Suspect]
     Indication: HYPERTENSION
     Route: 048
     Dates: start: 20101101
  2. TWYNSTA [Suspect]

REACTIONS (7)
  - NERVOUSNESS [None]
  - HEADACHE [None]
  - TACHYCARDIA [None]
  - COUGH [None]
  - HYPERTENSION [None]
  - INSOMNIA [None]
  - DRUG EFFECT DECREASED [None]
